FAERS Safety Report 8129826-8 (Version None)
Quarter: 2012Q1

REPORT INFORMATION
  Report Type: 
  Country: None (occurrence: None)
  Receive Date: 20120210
  Receipt Date: 20120210
  Transmission Date: 20120608
  Serious: Yes (Life-Threatening)
  Sender: FDA-Public Use
  Company Number: None

PATIENT
  Age: 4 Year
  Sex: Female
  Weight: 19.504 kg

DRUGS (1)
  1. SINGULAIR [Suspect]
     Indication: ASTHMA
     Dosage: 1 TABLET
     Route: 048
     Dates: start: 20120119, end: 20120208

REACTIONS (5)
  - COUGH [None]
  - INSOMNIA [None]
  - RASH GENERALISED [None]
  - DIARRHOEA [None]
  - ABNORMAL DREAMS [None]
